FAERS Safety Report 12082868 (Version 2)
Quarter: 2016Q1

REPORT INFORMATION
  Report Type: Spontaneous
  Country: JP (occurrence: JP)
  Receive Date: 20160217
  Receipt Date: 20160301
  Transmission Date: 20160526
  Serious: Yes (Hospitalization, Disabling, Other)
  Sender: FDA-Public Use
  Company Number: PHJP2015JP021262

PATIENT
  Age: 42 Year
  Sex: Male
  Weight: 62 kg

DRUGS (4)
  1. KEPPRA [Concomitant]
     Active Substance: LEVETIRACETAM
     Indication: PRODUCT USED FOR UNKNOWN INDICATION
     Dosage: 500 MG, BID
     Route: 048
     Dates: start: 20150306
  2. TEGRETOL [Suspect]
     Active Substance: CARBAMAZEPINE
     Indication: EPILEPSY
     Dosage: 400 MG, BID
     Route: 048
     Dates: end: 20150422
  3. LANSOPRAZOLE. [Concomitant]
     Active Substance: LANSOPRAZOLE
     Indication: PRODUCT USED FOR UNKNOWN INDICATION
     Dosage: 30 MG, QD
     Route: 048
     Dates: start: 20150306
  4. KEFRAL [Suspect]
     Active Substance: CEFACLOR
     Indication: WOUND
     Dosage: 250 MG, TID
     Route: 048
     Dates: start: 20150414, end: 20150415

REACTIONS (9)
  - Renal impairment [Recovered/Resolved]
  - Epilepsy [Recovered/Resolved with Sequelae]
  - Kidney enlargement [Unknown]
  - Tubulointerstitial nephritis [Recovered/Resolved]
  - Fall [Unknown]
  - Wound [Unknown]
  - Haemorrhage intracranial [Unknown]
  - Epilepsy [Recovered/Resolved with Sequelae]
  - Acute kidney injury [Recovering/Resolving]

NARRATIVE: CASE EVENT DATE: 20150306
